FAERS Safety Report 6107023-5 (Version None)
Quarter: 2009Q1

REPORT INFORMATION
  Report Type: 
  Country: None (occurrence: None)
  Receive Date: 20090306
  Receipt Date: 20090306
  Transmission Date: 20090719
  Serious: Yes (Life-Threatening, Hospitalization)
  Sender: FDA-Public Use
  Company Number: None

PATIENT
  Sex: Female
  Weight: 76.2043 kg

DRUGS (3)
  1. ORTHO TRI-CYCLEN LO [Suspect]
     Indication: MUSCLE SPASMS
     Dosage: 1 PILL FOR 28 DAYS DAILY ORAL
     Route: 048
     Dates: start: 20010101, end: 20030101
  2. ORTHO TRI-CYCLEN LO [Suspect]
     Indication: MUSCLE SPASMS
     Dosage: 1 PILL FOR 28 DAYS DAILY ORAL
     Route: 048
     Dates: start: 20080101, end: 20090101
  3. TRI NESSA (2004 - 2007) [Suspect]
     Indication: CONTRACEPTION
     Dosage: 1 PILL FOR 28 DAYS DAILY ORAL
     Route: 048
     Dates: start: 20040101, end: 20070101

REACTIONS (3)
  - CAROTID ARTERY DISSECTION [None]
  - CAROTID ARTERY STENOSIS [None]
  - CEREBRAL HYPOPERFUSION [None]
